FAERS Safety Report 23839405 (Version 2)
Quarter: 2024Q2

REPORT INFORMATION
  Report Type: Report from Study
  Country: US (occurrence: US)
  Receive Date: 20240510
  Receipt Date: 20240628
  Transmission Date: 20240716
  Serious: Yes (Other)
  Sender: FDA-Public Use
  Company Number: US-ABBVIE-5717617

PATIENT
  Sex: Female

DRUGS (2)
  1. IMBRUVICA [Suspect]
     Active Substance: IBRUTINIB
     Indication: Chronic lymphocytic leukaemia
     Route: 048
     Dates: start: 201911
  2. IMBRUVICA [Suspect]
     Active Substance: IBRUTINIB
     Indication: Chronic lymphocytic leukaemia
     Route: 048
     Dates: start: 20191127

REACTIONS (8)
  - White blood cell count increased [Not Recovered/Not Resolved]
  - Spondylitis [Unknown]
  - Lung disorder [Unknown]
  - Pain [Unknown]
  - Breast calcifications [Unknown]
  - Fall [Unknown]
  - Depressed mood [Unknown]
  - Arthritis [Unknown]
